FAERS Safety Report 6233193-4 (Version None)
Quarter: 2009Q2

REPORT INFORMATION
  Report Type: 
  Country: None (occurrence: None)
  Receive Date: 20090617
  Receipt Date: 20090414
  Transmission Date: 20091009
  Serious: Yes (Death)
  Sender: FDA-Public Use
  Company Number: US-BAYER-200914294NA

PATIENT
  Age: 63 Year
  Sex: Male
  Weight: 71 kg

DRUGS (25)
  1. MAGNEVIST [Suspect]
     Indication: NUCLEAR MAGNETIC RESONANCE IMAGING BRAIN
     Dates: start: 19991106, end: 19991106
  2. MAGNEVIST [Suspect]
     Dates: start: 20011022, end: 20011022
  3. MAGNEVIST [Suspect]
     Dates: start: 20020104, end: 20020104
  4. DIGOXIN [Concomitant]
  5. CARDIZEM CD [Concomitant]
  6. DEXFOL [Concomitant]
  7. RENAGEL [Concomitant]
     Indication: BLOOD PHOSPHORUS INCREASED
  8. PRILOSEC [Concomitant]
  9. FOSAMAX [Concomitant]
  10. COUMADIN [Concomitant]
  11. ASCORBIC ACID [Concomitant]
  12. OSCAL [Concomitant]
  13. LYRICA [Concomitant]
     Indication: PAIN
  14. CELEBREX [Concomitant]
     Indication: ARTHRITIS
  15. EPOGEN [Concomitant]
     Dates: start: 20010101, end: 20080101
  16. CYCLOSPORINE [Concomitant]
     Dates: start: 19910101, end: 19990101
  17. PROCRIT [Concomitant]
  18. ALEVE [Concomitant]
  19. NEURONTIN [Concomitant]
  20. VOLTAREN [Concomitant]
  21. ALLOPURINOL [Concomitant]
  22. PROTONIX [Concomitant]
  23. DARVOCET [Concomitant]
  24. COLACE [Concomitant]
  25. MIDODRINE [Concomitant]

REACTIONS (46)
  - ABASIA [None]
  - ANHEDONIA [None]
  - ANXIETY [None]
  - ARTHRALGIA [None]
  - ARTHROPATHY [None]
  - ASTHENIA [None]
  - BLISTER [None]
  - DEFORMITY [None]
  - DRY SKIN [None]
  - DYSPNOEA [None]
  - EMOTIONAL DISTRESS [None]
  - ERYTHEMA [None]
  - EXERCISE TOLERANCE DECREASED [None]
  - FIBROSIS [None]
  - GAIT DISTURBANCE [None]
  - GENERAL PHYSICAL HEALTH DETERIORATION [None]
  - HYPOAESTHESIA [None]
  - JOINT CONTRACTURE [None]
  - JOINT RANGE OF MOTION DECREASED [None]
  - JOINT STIFFNESS [None]
  - JOINT SWELLING [None]
  - LYMPHOEDEMA [None]
  - MOBILITY DECREASED [None]
  - MUSCULAR WEAKNESS [None]
  - MUSCULOSKELETAL PAIN [None]
  - NEPHROGENIC SYSTEMIC FIBROSIS [None]
  - NEUROPATHY PERIPHERAL [None]
  - NODULE ON EXTREMITY [None]
  - OEDEMA PERIPHERAL [None]
  - OSTEOARTHRITIS [None]
  - OSTEONECROSIS [None]
  - PAIN [None]
  - PAIN IN EXTREMITY [None]
  - PARAESTHESIA [None]
  - PITTING OEDEMA [None]
  - RASH [None]
  - RASH ERYTHEMATOUS [None]
  - RAYNAUD'S PHENOMENON [None]
  - SCLERODACTYLIA [None]
  - SKIN DISCOLOURATION [None]
  - SKIN DISORDER [None]
  - SKIN FIBROSIS [None]
  - SKIN HYPERPIGMENTATION [None]
  - SKIN HYPERTROPHY [None]
  - SKIN WARM [None]
  - VENOUS INSUFFICIENCY [None]
